FAERS Safety Report 9881593 (Version 2)
Quarter: 2014Q1

REPORT INFORMATION
  Report Type: Spontaneous
  Country: US (occurrence: None)
  Receive Date: 20140205
  Receipt Date: 20140218
  Transmission Date: 20141002
  Serious: Yes (Hospitalization)
  Sender: FDA-Public Use
  Company Number: AUR-APL-2014-00800

PATIENT
  Age: 50 Year
  Sex: Female
  Weight: 101 kg

DRUGS (6)
  1. SIMVASTATIN [Suspect]
     Indication: BLOOD CHOLESTEROL
     Dosage: 40 MG 1 IN 1 D
     Route: 048
     Dates: start: 20100726, end: 20130928
  2. PRINIVIL [Concomitant]
  3. CELEXA [Concomitant]
  4. RISPERDAL [Concomitant]
  5. BENADRYL [Concomitant]
  6. IRON [Concomitant]

REACTIONS (7)
  - Dyspnoea [None]
  - Abdominal discomfort [None]
  - Presyncope [None]
  - Panic reaction [None]
  - Atrial fibrillation [None]
  - Hypokalaemia [None]
  - Hypomagnesaemia [None]
